FAERS Safety Report 5090721-2 (Version None)
Quarter: 2006Q3

REPORT INFORMATION
  Report Type: 
  Country: None (occurrence: None)
  Receive Date: 20060823
  Receipt Date: 20060622
  Transmission Date: 20061208
  Serious: Yes (Hospitalization, Disabling)
  Sender: FDA-Public Use
  Company Number: JPKO-S-20060022-V001

PATIENT
  Age: 70 Year
  Sex: Male

DRUGS (3)
  1. NAVELBINE [Suspect]
     Indication: MESOTHELIOMA
     Dosage: 40 MILLIGRAM, INTRAVENOUS
     Route: 042
     Dates: start: 20050328, end: 20050901
  2. AQUPLA - NEDAPLATIN [Suspect]
     Indication: MESOTHELIOMA
     Dosage: 30 MILLIGRAM, INTRAVENOUS
     Route: 042
     Dates: start: 20050328, end: 20050901
  3. AQUPLA - NEDAPLATIN [Suspect]
     Indication: MESOTHELIOMA
     Dosage: 30 MILLIGRAM, INTRAVENOUS
     Route: 042
     Dates: end: 20050901

REACTIONS (2)
  - MESOTHELIOMA MALIGNANT RECURRENT [None]
  - TRIGGER FINGER [None]
